FAERS Safety Report 6587858-5 (Version None)
Quarter: 2010Q1

REPORT INFORMATION
  Report Type: 
  Country: None (occurrence: None)
  Receive Date: 20100217
  Receipt Date: 20100217
  Transmission Date: 20100710
  Serious: Yes (Other)
  Sender: FDA-Public Use
  Company Number: None

PATIENT
  Age: 30 Year
  Sex: Male
  Weight: 72.5755 kg

DRUGS (3)
  1. MINOCYCLINE HCL [Suspect]
     Indication: ACNE
     Dosage: 100 BID PO
     Route: 048
     Dates: start: 20090301, end: 20090501
  2. DOXYCYCLINE HYCLATE [Suspect]
     Dosage: 100 BID PO
     Route: 048
     Dates: start: 20080901, end: 20081201
  3. DOXYCYCLINE HYCLATE [Suspect]
     Dosage: 100 BID PO
     Route: 048
     Dates: start: 20091101

REACTIONS (1)
  - DRUG INEFFECTIVE [None]
